FAERS Safety Report 4561598-6 (Version None)
Quarter: 2005Q1

REPORT INFORMATION
  Report Type: 
  Country: None (occurrence: None)
  Receive Date: 20050126
  Receipt Date: 20041129
  Transmission Date: 20050727
  Serious: Yes (Life-Threatening, Other)
  Sender: FDA-Public Use
  Company Number: US-GLAXOSMITHKLINE-A0535379A

PATIENT
  Age: 48 Year
  Sex: Female
  Weight: 82.7 kg

DRUGS (5)
  1. LAMICTAL [Suspect]
     Indication: FIBROMYALGIA
     Route: 048
  2. VITAMIN C [Concomitant]
  3. VITAMIN E [Concomitant]
  4. CALCIUM GLUCONATE [Concomitant]
  5. MULTI-VITAMIN [Concomitant]

REACTIONS (5)
  - CARDIAC ARREST [None]
  - CARDIAC PACEMAKER INSERTION [None]
  - HYPOTENSION [None]
  - LOSS OF CONSCIOUSNESS [None]
  - SINUS ARREST [None]
